FAERS Safety Report 6587692-6 (Version None)
Quarter: 2010Q1

REPORT INFORMATION
  Report Type: 
  Country: None (occurrence: None)
  Receive Date: 20100204
  Receipt Date: 20100125
  Transmission Date: 20100710
  Serious: Yes (Hospitalization, Other)
  Sender: FDA-Public Use
  Company Number: AE-2009-382

PATIENT
  Age: 18 Year
  Sex: Male

DRUGS (7)
  1. METFORMIN HYDROCHLORIDE [Suspect]
     Indication: OBESITY
     Dosage: 250MG, QD;  250MG, BID
     Dates: start: 20080401, end: 20080405
  2. METFORMIN HYDROCHLORIDE [Suspect]
     Indication: OBESITY
     Dosage: 250MG, QD;  250MG, BID
     Dates: end: 20080405
  3. CLOZARIL [Suspect]
     Indication: SCHIZOPHRENIA
     Dosage: 350MG, ORAL; BID, ORAL
     Route: 048
     Dates: start: 20071102, end: 20080514
  4. DOCUSATE [Concomitant]
  5. HYOSCINE [Concomitant]
  6. SENNA [Concomitant]
  7. OLANZAPINE [Concomitant]

REACTIONS (9)
  - DEHYDRATION [None]
  - DRUG INTERACTION [None]
  - ENURESIS [None]
  - GASTROENTERITIS [None]
  - GASTROENTERITIS VIRAL [None]
  - NEUTROPENIA [None]
  - PNEUMONIA [None]
  - SALIVARY HYPERSECRETION [None]
  - WEIGHT INCREASED [None]
